FAERS Safety Report 10384040 (Version 2)
Quarter: 2015Q1

REPORT INFORMATION
  Report Type: Spontaneous
  Country: CN (occurrence: CN)
  Receive Date: 20140814
  Receipt Date: 20150205
  Transmission Date: 20150720
  Serious: Yes (Other)
  Sender: FDA-Public Use
  Company Number: PHHY2014CN096775

PATIENT
  Sex: Male
  Weight: 2.9 kg

DRUGS (1)
  1. TRILEPTAL [Suspect]
     Active Substance: OXCARBAZEPINE
     Indication: PRODUCT USED FOR UNKNOWN INDICATION
     Dosage: MATERNAL DOSE: 1 DF, QD
     Route: 064

REACTIONS (2)
  - Umbilical cord around neck [Unknown]
  - Foetal exposure during pregnancy [Unknown]
